FAERS Safety Report 6584662-9 (Version None)
Quarter: 2010Q1

REPORT INFORMATION
  Report Type: 
  Country: None (occurrence: None)
  Receive Date: 20100204
  Receipt Date: 20100129
  Transmission Date: 20100710
  Serious: Yes (Hospitalization)
  Sender: FDA-Public Use
  Company Number: 2010SP006268

PATIENT
  Age: 70 Year
  Sex: Female

DRUGS (3)
  1. TICE BCG [Suspect]
     Indication: DRUG USE FOR UNKNOWN INDICATION
     Dates: start: 20090101
  2. TICE BCG [Suspect]
     Indication: DRUG USE FOR UNKNOWN INDICATION
     Dates: start: 20100112
  3. ADVIL [Concomitant]

REACTIONS (1)
  - PANCREATITIS [None]
